FAERS Safety Report 10079753 (Version 1)
Quarter: 2014Q2

REPORT INFORMATION
  Report Type: Spontaneous
  Country: US (occurrence: US)
  Receive Date: 20140415
  Receipt Date: 20140415
  Transmission Date: 20141212
  Serious: Yes (Other)
  Sender: FDA-Public Use
  Company Number: US-GLAXOSMITHKLINE-A1069344A

PATIENT
  Sex: Female

DRUGS (3)
  1. ADVAIR [Suspect]
     Indication: PRODUCT USED FOR UNKNOWN INDICATION
     Route: 065
     Dates: start: 20090428
  2. CELLCEPT [Concomitant]
  3. PLAQUENIL [Concomitant]

REACTIONS (2)
  - Systemic lupus erythematosus [Unknown]
  - Arthritis [Unknown]
